FAERS Safety Report 6864924-8 (Version None)
Quarter: 2010Q3

REPORT INFORMATION
  Report Type: 
  Country: None (occurrence: None)
  Receive Date: 20100721
  Receipt Date: 20080602
  Transmission Date: 20110219
  Serious: No
  Sender: FDA-Public Use
  Company Number: US-PFIZER INC-2008029365

PATIENT
  Sex: Female

DRUGS (5)
  1. CHANTIX [Suspect]
     Indication: SMOKING CESSATION THERAPY
     Route: 048
     Dates: start: 20080301, end: 20080531
  2. AMBIEN [Concomitant]
  3. ANXIOLYTICS [Concomitant]
     Dates: end: 20080320
  4. ZOLPIDEM TARTRATE [Concomitant]
     Dates: end: 20080320
  5. ANTIDEPRESSANTS [Concomitant]

REACTIONS (12)
  - ABDOMINAL PAIN [None]
  - ABNORMAL DREAMS [None]
  - ANXIETY [None]
  - BLADDER DISORDER [None]
  - DEPRESSION [None]
  - DIARRHOEA [None]
  - DRY MOUTH [None]
  - FATIGUE [None]
  - INSOMNIA [None]
  - SLEEP DISORDER [None]
  - SOMNOLENCE [None]
  - VISION BLURRED [None]
